FAERS Safety Report 7081245-1 (Version None)
Quarter: 2010Q4

REPORT INFORMATION
  Report Type: 
  Country: None (occurrence: None)
  Receive Date: 20101103
  Receipt Date: 20101015
  Transmission Date: 20110411
  Serious: Yes (Hospitalization)
  Sender: FDA-Public Use
  Company Number: US-BAYER-200935882NA

PATIENT
  Age: 44 Year
  Sex: Female
  Weight: 77 kg

DRUGS (5)
  1. YASMIN [Suspect]
     Indication: CONTRACEPTION
     Dosage: IT WAS ALSO MENTIONED THE USE FROM JUL-2006 TO JUL-2007
     Route: 048
     Dates: start: 20060601, end: 20070601
  2. YAZ [Suspect]
  3. IBUPROFEN [Concomitant]
     Indication: HEADACHE
  4. LEUTHYROXINE [Concomitant]
     Indication: HYPOTHYROIDISM
     Dates: start: 20070101
  5. MINOCYCLINE HCL [Concomitant]
     Dates: start: 20040101, end: 20070101

REACTIONS (1)
  - BILIARY COLIC [None]
